FAERS Safety Report 4713476-7 (Version None)
Quarter: 2005Q3

REPORT INFORMATION
  Report Type: 
  Country: None (occurrence: None)
  Receive Date: 20050712
  Receipt Date: 20050630
  Transmission Date: 20060218
  Serious: Yes (Other)
  Sender: FDA-Public Use
  Company Number: 2005086872

PATIENT
  Sex: Female

DRUGS (2)
  1. LISTERINE ANTISEPTIC MOUTHWASH (MENTOL, METHYL SALICYLATE, EUCALYPTOL, [Suspect]
     Indication: BREATH ODOUR
     Dosage: 1 MOUTHFUL BID, ORAL TOPICAL
     Route: 061
  2. ASPIRIN [Concomitant]

REACTIONS (5)
  - ABSCESS [None]
  - BONE DISORDER [None]
  - GINGIVITIS [None]
  - PHARMACEUTICAL PRODUCT COMPLAINT [None]
  - TOOTH LOSS [None]
